FAERS Safety Report 7201370-1 (Version None)
Quarter: 2010Q4

REPORT INFORMATION
  Report Type: 
  Country: None (occurrence: None)
  Receive Date: 20101229
  Receipt Date: 20101220
  Transmission Date: 20110411
  Serious: Yes (Hospitalization)
  Sender: FDA-Public Use
  Company Number: SE-JNJFOC-20101207171

PATIENT
  Sex: Male

DRUGS (6)
  1. RISPERDAL [Suspect]
     Indication: ANXIETY
     Route: 048
  2. RISPERDAL [Suspect]
     Indication: DELUSION
     Route: 048
  3. MIRTAZAPIN [Suspect]
     Indication: ANXIETY
     Route: 048
  4. MIRTAZAPIN [Suspect]
     Indication: DELUSION
     Route: 048
  5. ARICEPT [Suspect]
     Indication: ILL-DEFINED DISORDER
     Route: 048
  6. LEVOTHYROXINE SODIUM [Concomitant]
     Route: 065

REACTIONS (1)
  - PULMONARY EMBOLISM [None]
